FAERS Safety Report 10248204 (Version 2)
Quarter: 2014Q2

REPORT INFORMATION
  Report Type: Spontaneous
  Country: FR (occurrence: FR)
  Receive Date: 20140620
  Receipt Date: 20140620
  Transmission Date: 20141212
  Serious: Yes (Other)
  Sender: FDA-Public Use
  Company Number: FR-UCBSA-090741

PATIENT
  Sex: Female

DRUGS (1)
  1. KEPPRA [Suspect]
     Indication: EPILEPSY
     Route: 048

REACTIONS (3)
  - Hallucination, auditory [Recovered/Resolved]
  - Persecutory delusion [Recovered/Resolved]
  - Nocturnal fear [Recovered/Resolved]
